FAERS Safety Report 12855429 (Version 1)
Quarter: 2016Q4

REPORT INFORMATION
  Report Type: Spontaneous
  Country: US (occurrence: US)
  Receive Date: 20161017
  Receipt Date: 20161017
  Transmission Date: 20170207
  Serious: No
  Sender: FDA-Public Use
  Company Number: US-TAKEDA-2016TUS018586

PATIENT
  Sex: Male

DRUGS (1)
  1. TRINTELLIX [Suspect]
     Active Substance: VORTIOXETINE HYDROBROMIDE
     Indication: MOOD SWINGS
     Dosage: 40 MG, QD
     Route: 048

REACTIONS (3)
  - Overdose [Not Recovered/Not Resolved]
  - No adverse event [Unknown]
  - Off label use [Not Recovered/Not Resolved]
